FAERS Safety Report 6793526-7 (Version None)
Quarter: 2010Q2

REPORT INFORMATION
  Report Type: 
  Country: None (occurrence: None)
  Receive Date: 20100624
  Receipt Date: 20100607
  Transmission Date: 20101027
  Serious: Yes (Other)
  Sender: FDA-Public Use
  Company Number: US-MYLANLABS-2010S1007911

PATIENT
  Age: 36 Year
  Sex: Male
  Weight: 82.46 kg

DRUGS (7)
  1. CLOZAPINE [Suspect]
     Indication: BIPOLAR DISORDER
     Route: 048
     Dates: start: 20080101, end: 20100318
  2. CLOZAPINE [Suspect]
     Route: 048
     Dates: start: 20080101, end: 20100318
  3. ZYPREXA [Concomitant]
     Route: 048
  4. DEPAKOTE [Concomitant]
     Route: 048
  5. DESMOPRESSIN ACETATE [Concomitant]
     Route: 048
  6. LOPID [Concomitant]
     Route: 048
  7. NIASPAN [Concomitant]
     Route: 048

REACTIONS (4)
  - BIPOLAR DISORDER [None]
  - DRUG INEFFECTIVE [None]
  - GRANULOCYTOPENIA [None]
  - LEUKOPENIA [None]
